FAERS Safety Report 8606742 (Version 5)
Quarter: 2014Q2

REPORT INFORMATION
  Report Type: Spontaneous
  Country: US (occurrence: US)
  Receive Date: 20120611
  Receipt Date: 20140523
  Transmission Date: 20141212
  Serious: Yes (Hospitalization, Disabling)
  Sender: FDA-Public Use
  Company Number: US-ASTRAZENECA-2012SE34835

PATIENT
  Age: 664 Month
  Sex: Female
  Weight: 70.8 kg

DRUGS (12)
  1. NEXIUM [Suspect]
     Indication: GASTROOESOPHAGEAL REFLUX DISEASE
     Route: 048
     Dates: start: 2008, end: 2010
  2. NEXIUM [Suspect]
     Indication: GASTROOESOPHAGEAL REFLUX DISEASE
     Route: 048
     Dates: start: 20090610
  3. NEXIUM [Suspect]
     Indication: GASTROOESOPHAGEAL REFLUX DISEASE
     Route: 048
     Dates: start: 20110103
  4. ZANTAC [Concomitant]
  5. ADVIL [Concomitant]
  6. DIAZEPAM [Concomitant]
     Dates: start: 20090807
  7. HYDROCODONE [Concomitant]
     Dosage: 10/500 TAKE ONE TABLET BY MOUTH DAILY
  8. HYDROCODONE [Concomitant]
     Dosage: 10/500
     Dates: start: 20110103
  9. PRAVASTATIN [Concomitant]
     Indication: BLOOD CHOLESTEROL
     Dates: start: 20080919
  10. PRAVASTATIN [Concomitant]
     Indication: BLOOD CHOLESTEROL
     Dates: start: 20091109
  11. LEVOTHYROXIN [Concomitant]
     Dates: start: 20110103
  12. LORTAB [Concomitant]
     Dosage: 7.5/500
     Dates: start: 20100114

REACTIONS (13)
  - Lower limb fracture [Unknown]
  - Breast cancer [Unknown]
  - Stress [Unknown]
  - Tibia fracture [Unknown]
  - Fibula fracture [Unknown]
  - Osteoporosis [Unknown]
  - Multiple fractures [Unknown]
  - Pain in extremity [Unknown]
  - Bone pain [Unknown]
  - Diabetes mellitus [Unknown]
  - Osteoarthritis [Unknown]
  - Fall [Unknown]
  - Limb injury [Unknown]
